FAERS Safety Report 15275671 (Version 2)
Quarter: 2018Q3

REPORT INFORMATION
  Report Type: Spontaneous
  Country: US (occurrence: US)
  Receive Date: 20180814
  Receipt Date: 20180925
  Transmission Date: 20181010
  Serious: Yes (Death)
  Sender: FDA-Public Use
  Company Number: US-CELLTRION INC.-2018US020250

PATIENT

DRUGS (2)
  1. INFLECTRA [Suspect]
     Active Substance: INFLIXIMAB-DYYB
     Indication: CROHN^S DISEASE
     Dosage: 300 MG, EEVERY 8 WEEKS
     Route: 065
  2. INFLECTRA [Suspect]
     Active Substance: INFLIXIMAB-DYYB
     Indication: CHRONIC DISEASE
     Dosage: UNK
     Route: 065
     Dates: start: 20180510, end: 20180510

REACTIONS (2)
  - Drug prescribing error [Unknown]
  - Death [Fatal]

NARRATIVE: CASE EVENT DATE: 20180518
